FAERS Safety Report 5324711-9 (Version None)
Quarter: 2007Q2

REPORT INFORMATION
  Report Type: 
  Country: None (occurrence: None)
  Receive Date: 20070509
  Receipt Date: 20070427
  Transmission Date: 20071010
  Serious: Yes (Hospitalization)
  Sender: FDA-Public Use
  Company Number: GXKR2007GB03886

PATIENT
  Age: 23 Year
  Sex: Male

DRUGS (7)
  1. TRIFLUOPERAZINE HCL [Suspect]
     Indication: OTITIS MEDIA
     Dosage: 5 MG, BID, ORAL
     Route: 048
  2. DICLOFENAC (DICLOFENAC) [Concomitant]
  3. MEPTAZINOL (MEPTAZINOL) [Concomitant]
  4. MONTELUKAST (MONTELUKAST) [Concomitant]
  5. ACETAMINOPHEN [Concomitant]
  6. FLUTICASONE PROPIONATE W/SALMETEROL XINAFOATE (FLUTICASONE PROPIONATE, [Concomitant]
  7. TERBUTALINE SULFATE [Concomitant]

REACTIONS (8)
  - DYSPNOEA [None]
  - EXTRAPYRAMIDAL DISORDER [None]
  - HYPERHIDROSIS [None]
  - MUSCLE RIGIDITY [None]
  - MUSCLE SPASMS [None]
  - SWOLLEN TONGUE [None]
  - TONGUE SPASM [None]
  - TREMOR [None]
